FAERS Safety Report 23762967 (Version 1)
Quarter: 2024Q2

REPORT INFORMATION
  Report Type: Spontaneous
  Country: US (occurrence: US)
  Receive Date: 20240419
  Receipt Date: 20240419
  Transmission Date: 20240716
  Serious: No
  Sender: FDA-Public Use
  Company Number: US-ELI_LILLY_AND_COMPANY-US202404008093

PATIENT
  Sex: Female

DRUGS (1)
  1. OMVOH [Suspect]
     Active Substance: MIRIKIZUMAB-MRKZ
     Indication: Product used for unknown indication
     Dosage: 300 MG, UNKNOWN
     Route: 065
     Dates: start: 20240404

REACTIONS (5)
  - Diarrhoea [Unknown]
  - Myalgia [Unknown]
  - Joint range of motion decreased [Unknown]
  - Abdominal pain [Unknown]
  - Arthralgia [Unknown]

NARRATIVE: CASE EVENT DATE: 20240406
